FAERS Safety Report 19490481 (Version 1)
Quarter: 2021Q3

REPORT INFORMATION
  Report Type: Spontaneous
  Country: US (occurrence: US)
  Receive Date: 20210705
  Receipt Date: 20210705
  Transmission Date: 20211014
  Serious: Yes (Disabling, Other)
  Sender: FDA-Public Use
  Company Number: US-ROCHE-2859886

PATIENT
  Sex: Female
  Weight: 174.79 kg

DRUGS (26)
  1. CLARITIN?D NOS [Concomitant]
     Active Substance: LORATADINE\PSEUDOEPHEDRINE SULFATE
     Indication: HYPERSENSITIVITY
     Route: 048
  2. POTASSIUM [Concomitant]
     Active Substance: POTASSIUM
     Route: 048
  3. SINGULAIR [Concomitant]
     Active Substance: MONTELUKAST SODIUM
     Indication: ASTHMA
     Route: 048
  4. OMEPRAZOLE. [Concomitant]
     Active Substance: OMEPRAZOLE
     Indication: GASTROOESOPHAGEAL REFLUX DISEASE
     Route: 048
  5. ELDERBERRY [Concomitant]
     Active Substance: HERBALS
     Route: 048
  6. APPLE CIDER VINEGAR [Concomitant]
     Active Substance: APPLE CIDER VINEGAR
     Route: 048
  7. NORCO [Concomitant]
     Active Substance: ACETAMINOPHEN\HYDROCODONE BITARTRATE
     Indication: FIBROMYALGIA
     Dosage: 10 325
     Route: 048
  8. TORSEMIDE. [Concomitant]
     Active Substance: TORSEMIDE
     Indication: SWELLING
     Route: 048
  9. GINGER. [Concomitant]
     Active Substance: GINGER
     Route: 048
  10. LYRICA [Concomitant]
     Active Substance: PREGABALIN
     Indication: FIBROMYALGIA
     Route: 048
  11. SELENIUM [Concomitant]
     Active Substance: SELENIUM
     Route: 048
  12. TURMERIC [Concomitant]
     Active Substance: HERBALS\TURMERIC
     Route: 048
  13. VITAMIN D3 [Concomitant]
     Active Substance: CHOLECALCIFEROL
     Dosage: TAKEN ON THE OTHER FIVE DAYS ;ONGOING: UNKNOWN
     Route: 048
  14. XOLAIR [Suspect]
     Active Substance: OMALIZUMAB
     Indication: ASTHMA
     Dosage: UNKNOWN
     Route: 058
     Dates: start: 2018
  15. ZYRTEC (UNITED STATES) [Concomitant]
     Indication: HYPERSENSITIVITY
     Route: 048
  16. HEMATINIC WITH FOLIC ACID [Concomitant]
     Route: 048
  17. LIOTHYRONINE [Concomitant]
     Active Substance: LIOTHYRONINE
     Indication: AUTOIMMUNE THYROIDITIS
     Route: 048
  18. SYNTHROID [Concomitant]
     Active Substance: LEVOTHYROXINE SODIUM
     Indication: AUTOIMMUNE THYROIDITIS
     Route: 048
  19. PROAIR HFA [Concomitant]
     Active Substance: ALBUTEROL SULFATE
     Indication: ASTHMA
     Dosage: 200 METER DOSE, EVERY 4?6 HOURS AS NEEDED ;
  20. CYCLOBENZAPRINE. [Concomitant]
     Active Substance: CYCLOBENZAPRINE
     Indication: FIBROMYALGIA
     Route: 048
  21. DULOXETINE. [Concomitant]
     Active Substance: DULOXETINE
     Indication: FIBROMYALGIA
     Route: 048
  22. PREGNENOLONE [Concomitant]
     Active Substance: PREGNENOLONE
     Dosage: TWO AND A HALF PILLS EVERY DAY ;ONGOING: UNKNOWN
     Route: 048
  23. XOLAIR [Suspect]
     Active Substance: OMALIZUMAB
     Indication: IDIOPATHIC URTICARIA
  24. SINGULAIR [Concomitant]
     Active Substance: MONTELUKAST SODIUM
     Indication: HYPERSENSITIVITY
  25. VITAMIN D2 [Concomitant]
     Active Substance: ERGOCALCIFEROL
     Dosage: TAKEN ON MONDAYS AND FRIDAYS ;ONGOING: UNKNOWN
     Route: 048
  26. ADVAIR HFA [Concomitant]
     Active Substance: FLUTICASONE PROPIONATE\SALMETEROL XINAFOATE
     Dosage: 500MCG/50MCG ;ONGOING: UNKNOWN
     Route: 055

REACTIONS (7)
  - Cortisol decreased [Unknown]
  - Swelling [Unknown]
  - Blindness [Unknown]
  - Addison^s disease [Unknown]
  - Blood testosterone abnormal [Unknown]
  - Fibromyalgia [Unknown]
  - Somnolence [Unknown]

NARRATIVE: CASE EVENT DATE: 2019
